FAERS Safety Report 8120613-3 (Version None)
Quarter: 2012Q1

REPORT INFORMATION
  Report Type: 
  Country: None (occurrence: None)
  Receive Date: 20120207
  Receipt Date: 20120126
  Transmission Date: 20120608
  Serious: Yes (Life-Threatening, Hospitalization)
  Sender: FDA-Public Use
  Company Number: DK-GILEAD-2012-0049891

PATIENT
  Sex: Male

DRUGS (8)
  1. VIREAD [Suspect]
     Indication: HIV INFECTION
     Dosage: 245 MG, QD
     Route: 048
     Dates: start: 20110511, end: 20111007
  2. METOPROLOL SUCCINATE [Concomitant]
  3. CENTYL MED KALIUMKLORID [Concomitant]
  4. EPIVIR [Concomitant]
  5. SIMVASTATIN [Concomitant]
  6. EFAVIRENZ [Concomitant]
  7. AMARYL [Concomitant]
  8. METFORMIN HCL [Suspect]
     Indication: DIABETES MELLITUS
     Dosage: 1000 MG, BID
     Route: 048
     Dates: start: 20090101, end: 20111007

REACTIONS (3)
  - INTESTINAL ISCHAEMIA [None]
  - RENAL FAILURE [None]
  - LACTIC ACIDOSIS [None]
